FAERS Safety Report 17851507 (Version 1)
Quarter: 2020Q2

REPORT INFORMATION
  Report Type: Spontaneous
  Country: US (occurrence: US)
  Receive Date: 20200602
  Receipt Date: 20200602
  Transmission Date: 20200714
  Serious: No
  Sender: FDA-Public Use
  Company Number: US-JNJFOC-20200521175

PATIENT
  Age: 31 Year
  Sex: Female
  Weight: 56.75 kg

DRUGS (1)
  1. MOTRIN INFANTS [Suspect]
     Active Substance: IBUPROFEN
     Indication: PRODUCT USED FOR UNKNOWN INDICATION
     Dosage: A TINY BIT ONCE.
     Route: 048
     Dates: start: 20200515, end: 20200515

REACTIONS (4)
  - Throat irritation [Recovering/Resolving]
  - Oral discomfort [Recovered/Resolved]
  - Product use in unapproved indication [Unknown]
  - Product administered to patient of inappropriate age [Unknown]

NARRATIVE: CASE EVENT DATE: 20200515
